FAERS Safety Report 7883159-3 (Version None)
Quarter: 2011Q4

REPORT INFORMATION
  Report Type: 
  Country: None (occurrence: None)
  Receive Date: 20111101
  Receipt Date: 20111101
  Transmission Date: 20120403
  Serious: Yes (Hospitalization)
  Sender: FDA-Public Use
  Company Number: None

PATIENT
  Sex: Female
  Weight: 44.09 kg

DRUGS (3)
  1. PEMETREXED [Suspect]
     Dosage: 720 MG
  2. CISPLATIN [Suspect]
     Dosage: CYCLE 6
     Dates: end: 20110815
  3. LOVENOX [Concomitant]

REACTIONS (17)
  - BLOOD ALBUMIN DECREASED [None]
  - HYDRONEPHROSIS [None]
  - BLOOD CHLORIDE DECREASED [None]
  - BLOOD SODIUM DECREASED [None]
  - BLOOD GLUCOSE INCREASED [None]
  - CERVIX CARCINOMA RECURRENT [None]
  - BLOOD PRESSURE DIASTOLIC DECREASED [None]
  - OXYGEN SATURATION DECREASED [None]
  - BLOOD CALCIUM DECREASED [None]
  - BLOOD ALKALINE PHOSPHATASE INCREASED [None]
  - SMALL INTESTINAL OBSTRUCTION [None]
  - DEEP VEIN THROMBOSIS [None]
  - HAEMATOCRIT DECREASED [None]
  - PLATELET COUNT DECREASED [None]
  - ENTEROCUTANEOUS FISTULA [None]
  - HAEMOGLOBIN DECREASED [None]
  - PROTHROMBIN TIME PROLONGED [None]
